FAERS Safety Report 6330227-3 (Version None)
Quarter: 2009Q3

REPORT INFORMATION
  Report Type: 
  Country: None (occurrence: None)
  Receive Date: 20090827
  Receipt Date: 20090507
  Transmission Date: 20100115
  Serious: No
  Sender: FDA-Public Use
  Company Number: US-KINGPHARMUSA00001-K200900554

PATIENT
  Age: 18 Year
  Sex: Female

DRUGS (2)
  1. FLECTOR [Suspect]
     Indication: MUSCLE STRAIN
     Dosage: 1 PATCH, UNK
     Route: 061
  2. FLECTOR [Suspect]
     Indication: PAIN

REACTIONS (2)
  - BURNING SENSATION [None]
  - NEURALGIA [None]
